FAERS Safety Report 9378107 (Version 4)
Quarter: 2013Q4

REPORT INFORMATION
  Report Type: Spontaneous
  Country: DE (occurrence: DE)
  Receive Date: 20130701
  Receipt Date: 20131206
  Transmission Date: 20140711
  Serious: Yes (Life-Threatening, Hospitalization, Other)
  Sender: FDA-Public Use
  Company Number: DE-UCBSA-089988

PATIENT
  Age: 3 Year
  Sex: Female
  Weight: 18 kg

DRUGS (9)
  1. KEPPRA [Suspect]
     Indication: BRAIN INJURY
     Route: 042
     Dates: start: 20130509, end: 20130511
  2. VANCOMYCIN [Suspect]
     Indication: BRAIN INJURY
     Route: 042
     Dates: start: 20130417, end: 20130509
  3. MEROPENEM [Concomitant]
     Indication: BRAIN INJURY
     Route: 042
     Dates: start: 20130417, end: 20130509
  4. METRONIDAZOL [Concomitant]
     Indication: BRAIN INJURY
     Route: 042
     Dates: start: 20130417, end: 20130504
  5. ANTRA [Concomitant]
     Indication: BRAIN INJURY
     Route: 042
     Dates: start: 20130417, end: 20130510
  6. DOPAMINE [Concomitant]
     Indication: HYPOTENSION
  7. MANNITOL [Concomitant]
  8. HYPOTONIC NACL [Concomitant]
  9. CLONAZEPAM [Concomitant]

REACTIONS (2)
  - Drug reaction with eosinophilia and systemic symptoms [Recovered/Resolved with Sequelae]
  - Convulsion [Unknown]
